FAERS Safety Report 5637626-3 (Version None)
Quarter: 2008Q1

REPORT INFORMATION
  Report Type: 
  Country: None (occurrence: None)
  Receive Date: 20080219
  Receipt Date: 20080207
  Transmission Date: 20080703
  Serious: Yes (Hospitalization, Other)
  Sender: FDA-Public Use
  Company Number: 231419J08USA

PATIENT
  Age: 48 Year
  Sex: Female
  Weight: 83.9154 kg

DRUGS (5)
  1. REBIF [Suspect]
     Indication: MULTIPLE SCLEROSIS
     Dosage: 44 MCG, 2 IN 1 WEEKS, SUBCUTANEOUS
     Route: 058
     Dates: start: 20040804, end: 20071201
  2. PROVIGIL [Concomitant]
  3. ESTRADIOL (ESTRADIOL VALERATE) [Concomitant]
  4. OMEPRAZOLE [Concomitant]
  5. IMMUNOGLOBULIN (IMMUNOGLOBULIN HUMAN NORMAL) [Concomitant]

REACTIONS (8)
  - BLOOD CHOLESTEROL INCREASED [None]
  - BRADYCARDIA [None]
  - CARDIAC FLUTTER [None]
  - CHEST PAIN [None]
  - HEAD INJURY [None]
  - INFLUENZA LIKE ILLNESS [None]
  - SYNCOPE [None]
  - VENTRICULAR EXTRASYSTOLES [None]
